FAERS Safety Report 7033447-8 (Version None)
Quarter: 2010Q4

REPORT INFORMATION
  Report Type: 
  Country: None (occurrence: None)
  Receive Date: 20101007
  Receipt Date: 20100927
  Transmission Date: 20110411
  Serious: Yes (Hospitalization)
  Sender: FDA-Public Use
  Company Number: US-BAXTER-2010BH023858

PATIENT
  Age: 92 Year
  Sex: Female

DRUGS (4)
  1. DIANEAL [Suspect]
     Indication: PERITONEAL DIALYSIS
     Route: 033
     Dates: start: 20100611
  2. DIANEAL [Suspect]
     Indication: PERITONEAL DIALYSIS
     Route: 033
     Dates: start: 20100526, end: 20100611
  3. LISINOPRIL [Concomitant]
     Indication: HYPERTENSION
     Route: 065
  4. FUROSEMIDE [Concomitant]
     Indication: HYPERTENSION
     Route: 065

REACTIONS (3)
  - ASTHENIA [None]
  - DIZZINESS [None]
  - HYPOTENSION [None]
